FAERS Safety Report 8158856-5 (Version None)
Quarter: 2012Q1

REPORT INFORMATION
  Report Type: 
  Country: None (occurrence: None)
  Receive Date: 20120223
  Receipt Date: 20120221
  Transmission Date: 20120608
  Serious: Yes (Other)
  Sender: FDA-Public Use
  Company Number: US-PFIZER INC-2012046046

PATIENT
  Age: 68 Year
  Sex: Female
  Weight: 68.027 kg

DRUGS (5)
  1. NASONEX [Concomitant]
     Indication: ASTHMA
  2. CHANTIX [Suspect]
     Dosage: 0.5 MG, UNK
     Dates: start: 20120101, end: 20120101
  3. NASONEX [Concomitant]
     Indication: BRONCHITIS
     Dosage: UNK
  4. CHANTIX [Suspect]
     Indication: SMOKING CESSATION THERAPY
     Dosage: 0.5 MG, DAILY
     Dates: start: 20120101, end: 20120101
  5. EPINEPHRINE [Suspect]
     Indication: ARTHROPOD STING
     Dosage: UNK
     Route: 042

REACTIONS (6)
  - ABNORMAL DREAMS [None]
  - NAUSEA [None]
  - ABDOMINAL DISCOMFORT [None]
  - MYOCARDIAL INFARCTION [None]
  - INFLUENZA [None]
  - COUGH [None]
